FAERS Safety Report 19179394 (Version 1)
Quarter: 2021Q2

REPORT INFORMATION
  Report Type: Spontaneous
  Country: US (occurrence: US)
  Receive Date: 20210423
  Receipt Date: 20210423
  Transmission Date: 20210717
  Serious: Yes (Other)
  Sender: FDA-Public Use
  Company Number: None

PATIENT
  Age: 37 Year
  Sex: Female
  Weight: 72 kg

DRUGS (6)
  1. SAM?E [Concomitant]
     Active Substance: ADEMETIONINE
  2. L?THEANINE [Concomitant]
     Active Substance: DIETARY SUPPLEMENT
  3. VITAMIN D3 [Concomitant]
     Active Substance: CHOLECALCIFEROL
  4. OTC ALLERGY MEDS [Concomitant]
  5. NEOSPORIN ECZEMA ESSENTIALS DAILY MOISTURIZING [Suspect]
     Active Substance: OATMEAL
     Indication: PRODUCT USED FOR UNKNOWN INDICATION
     Route: 061
     Dates: start: 20210416, end: 20210417
  6. ZOLOFT [Concomitant]
     Active Substance: SERTRALINE HYDROCHLORIDE

REACTIONS (6)
  - Swelling face [None]
  - Pruritus [None]
  - Rash [None]
  - Eye swelling [None]
  - Pharyngeal swelling [None]
  - Swelling [None]

NARRATIVE: CASE EVENT DATE: 20210417
